FAERS Safety Report 17363961 (Version 3)
Quarter: 2020Q1

REPORT INFORMATION
  Report Type: Report from Study
  Country: None (occurrence: NL)
  Receive Date: 20200203
  Receipt Date: 20200313
  Transmission Date: 20200409
  Serious: Yes (Death, Hospitalization, Other)
  Sender: FDA-Public Use
  Company Number: NL-ABBVIE-20K-114-3260584-00

PATIENT
  Age: 68 Year
  Sex: Female

DRUGS (2)
  1. DUODOPA [Suspect]
     Active Substance: CARBIDOPA\LEVODOPA
     Indication: PARKINSON^S DISEASE
     Route: 050
     Dates: start: 20180801
  2. MOVICOLON [Concomitant]
     Active Substance: POLYETHYLENE GLYCOL 3350\POTASSIUM CHLORIDE\SODIUM BICARBONATE\SODIUM CHLORIDE
     Indication: PRODUCT USED FOR UNKNOWN INDICATION

REACTIONS (6)
  - General physical health deterioration [Fatal]
  - Condition aggravated [Fatal]
  - Therapeutic product effect decreased [Unknown]
  - Fracture [Unknown]
  - Fall [Not Recovered/Not Resolved]
  - Hip surgery [Unknown]

NARRATIVE: CASE EVENT DATE: 201911
